FAERS Safety Report 6442698-2 (Version None)
Quarter: 2009Q4

REPORT INFORMATION
  Report Type: 
  Country: None (occurrence: None)
  Receive Date: 20091117
  Receipt Date: 20091109
  Transmission Date: 20100525
  Serious: Yes (Other)
  Sender: FDA-Public Use
  Company Number: TW-ROCHE-664229

PATIENT

DRUGS (1)
  1. TAMIFLU [Suspect]
     Route: 048
     Dates: start: 20091001, end: 20091001

REACTIONS (2)
  - EYE SWELLING [None]
  - LIP SWELLING [None]
